FAERS Safety Report 4270835-7 (Version None)
Quarter: 2004Q1

REPORT INFORMATION
  Report Type: 
  Country: None (occurrence: None)
  Receive Date: 20040113
  Receipt Date: 20040105
  Transmission Date: 20041129
  Serious: Yes (Other)
  Sender: FDA-Public Use
  Company Number: 1998002306-FJ

PATIENT
  Age: 8 Year
  Sex: Male
  Weight: 30.8 kg

DRUGS (4)
  1. PROGRAF [Suspect]
     Indication: LIVER TRANSPLANT
     Dosage: 2 MG, BID, ORAL; 3.5 MG, BID, ORAL; 5 MG, BID, ORAL
     Route: 048
     Dates: end: 19981019
  2. PROGRAF [Suspect]
     Indication: LIVER TRANSPLANT
     Dosage: 2 MG, BID, ORAL; 3.5 MG, BID, ORAL; 5 MG, BID, ORAL
     Route: 048
     Dates: start: 19981020, end: 19981102
  3. PROGRAF [Suspect]
     Indication: LIVER TRANSPLANT
     Dosage: 2 MG, BID, ORAL; 3.5 MG, BID, ORAL; 5 MG, BID, ORAL
     Route: 048
     Dates: start: 19981103, end: 19981109
  4. PROGRAF [Suspect]
     Indication: LIVER TRANSPLANT
     Dosage: 2 MG, BID, ORAL; 3.5 MG, BID, ORAL; 5 MG, BID, ORAL
     Route: 048
     Dates: start: 19910201

REACTIONS (5)
  - BLOOD PRESSURE SYSTOLIC INCREASED [None]
  - CEREBRAL INFARCTION [None]
  - CONVULSION [None]
  - HEADACHE [None]
  - LETHARGY [None]
